FAERS Safety Report 7473867-0 (Version None)
Quarter: 2011Q2

REPORT INFORMATION
  Report Type: 
  Country: None (occurrence: None)
  Receive Date: 20110511
  Receipt Date: 20110330
  Transmission Date: 20111010
  Serious: Yes (Other)
  Sender: FDA-Public Use
  Company Number: US-BAYER-2011-004601

PATIENT
  Sex: Female
  Weight: 97 kg

DRUGS (5)
  1. ACETAMINOPHEN [Concomitant]
  2. PRILOSEC [Concomitant]
  3. YAZ [Suspect]
     Indication: CONTRACEPTION
     Dosage: UNK
     Dates: start: 20080101, end: 20091101
  4. YAZ [Suspect]
     Indication: PREMENSTRUAL SYNDROME
  5. BENTYL [Concomitant]

REACTIONS (3)
  - GALLBLADDER DISORDER [None]
  - PREMENSTRUAL SYNDROME [None]
  - ANXIETY [None]
